FAERS Safety Report 8420435-X (Version None)
Quarter: 2012Q2

REPORT INFORMATION
  Report Type: 
  Country: None (occurrence: None)
  Receive Date: 20120607
  Receipt Date: 20120601
  Transmission Date: 20120825
  Serious: Yes (Other)
  Sender: FDA-Public Use
  Company Number: US-BAYER-201032940NA

PATIENT
  Sex: Female
  Weight: 64 kg

DRUGS (26)
  1. MAGNEVIST [Suspect]
     Dosage: UNK
     Dates: start: 20051020
  2. MAGNEVIST [Suspect]
  3. MAGNEVIST [Suspect]
     Indication: NUCLEAR MAGNETIC RESONANCE IMAGING
     Dosage: UNK
     Dates: start: 20040106
  4. FERLECIT [Concomitant]
  5. HECTOROL [Concomitant]
  6. LISINOPRIL [Concomitant]
  7. MIDODRINE HYDROCHLORIDE [Concomitant]
  8. RESTORIL [Concomitant]
  9. FERROUS SULFATE TAB [Concomitant]
  10. DOXERCALCIFEROL [Concomitant]
  11. PARICALCITOL [Concomitant]
  12. RENAGEL [Concomitant]
  13. SENSIPAR [Concomitant]
  14. VICODIN [Concomitant]
  15. NEPHROCAPS [Concomitant]
  16. ZANTAC [Concomitant]
  17. GADOLINIUM IN UNSPECIFIED DRUG [Suspect]
     Indication: NUCLEAR MAGNETIC RESONANCE IMAGING SPINAL
     Dosage: UNK
     Dates: start: 20040106, end: 20040106
  18. OMNISCAN [Suspect]
     Indication: NUCLEAR MAGNETIC RESONANCE IMAGING
  19. VITAMIN B6 [Concomitant]
  20. PHOSLO [Concomitant]
  21. DIPHENHYDRAMINE HCL [Concomitant]
  22. ASPIRIN [Concomitant]
  23. GADOLINIUM IN UNSPECIFIED DRUG [Suspect]
     Indication: NUCLEAR MAGNETIC RESONANCE IMAGING
     Dosage: UNK
     Dates: start: 20051020, end: 20051020
  24. EPOGEN [Concomitant]
  25. FOSAMAX [Concomitant]
  26. RENVELA [Concomitant]

REACTIONS (19)
  - NEPHROGENIC SYSTEMIC FIBROSIS [None]
  - SKIN INDURATION [None]
  - JOINT STIFFNESS [None]
  - GAIT DISTURBANCE [None]
  - LOCALISED OEDEMA [None]
  - SKIN TIGHTNESS [None]
  - RASH MACULAR [None]
  - PAIN IN EXTREMITY [None]
  - SKIN PLAQUE [None]
  - ARTHRALGIA [None]
  - JOINT SWELLING [None]
  - DERMATITIS [None]
  - SKIN HYPERTROPHY [None]
  - SKIN EXFOLIATION [None]
  - SKIN FIBROSIS [None]
  - MUSCULOSKELETAL STIFFNESS [None]
  - PAIN [None]
  - SKIN HYPERPIGMENTATION [None]
  - RASH PAPULAR [None]
